FAERS Safety Report 14955930 (Version 1)
Quarter: 2018Q2

REPORT INFORMATION
  Report Type: Spontaneous
  Country: DE (occurrence: DE)
  Receive Date: 20180531
  Receipt Date: 20180531
  Transmission Date: 20180711
  Serious: Yes (Other)
  Sender: FDA-Public Use
  Company Number: DE-MERCK KGAA-2048760

PATIENT
  Sex: Female

DRUGS (3)
  1. SELEN [Concomitant]
     Active Substance: SELENIUM
  2. NOVOTHYROX [Suspect]
     Active Substance: LEVOTHYROXINE SODIUM
  3. NOVOTHYROX [Suspect]
     Active Substance: LEVOTHYROXINE SODIUM
     Indication: AUTOIMMUNE THYROIDITIS

REACTIONS (7)
  - Megacolon [None]
  - Abdominal pain [None]
  - Vitamin B12 deficiency [None]
  - Middle insomnia [None]
  - Vitamin D deficiency [None]
  - Blood thyroid stimulating hormone abnormal [None]
  - Abdominal adhesions [None]
